FAERS Safety Report 8220022-2 (Version None)
Quarter: 2012Q1

REPORT INFORMATION
  Report Type: 
  Country: None (occurrence: None)
  Receive Date: 20120320
  Receipt Date: 20120308
  Transmission Date: 20120608
  Serious: Yes (Hospitalization, Other)
  Sender: FDA-Public Use
  Company Number: US-BRISTOL-MYERS SQUIBB COMPANY-16443913

PATIENT
  Sex: Female

DRUGS (1)
  1. ORENCIA [Suspect]

REACTIONS (5)
  - CELLULITIS [None]
  - LIMB INJURY [None]
  - ALOPECIA [None]
  - FALL [None]
  - ARTHROPATHY [None]
